FAERS Safety Report 25364678 (Version 1)
Quarter: 2025Q2

REPORT INFORMATION
  Report Type: Spontaneous
  Country: FR (occurrence: FR)
  Receive Date: 20250527
  Receipt Date: 20250527
  Transmission Date: 20250716
  Serious: Yes (Hospitalization)
  Sender: MYLAN
  Company Number: None

PATIENT
  Age: 83 Year
  Sex: Male
  Weight: 77 kg

DRUGS (20)
  1. PREGABALIN [Suspect]
     Active Substance: PREGABALIN
     Indication: Product used for unknown indication
     Dates: start: 20250422, end: 20250422
  2. PREGABALIN [Suspect]
     Active Substance: PREGABALIN
     Route: 048
     Dates: start: 20250422, end: 20250422
  3. PREGABALIN [Suspect]
     Active Substance: PREGABALIN
     Route: 048
     Dates: start: 20250422, end: 20250422
  4. PREGABALIN [Suspect]
     Active Substance: PREGABALIN
     Dates: start: 20250422, end: 20250422
  5. ZOPICLONE [Suspect]
     Active Substance: ZOPICLONE
     Indication: Product used for unknown indication
     Dates: start: 20250422, end: 20250422
  6. ZOPICLONE [Suspect]
     Active Substance: ZOPICLONE
     Route: 048
     Dates: start: 20250422, end: 20250422
  7. ZOPICLONE [Suspect]
     Active Substance: ZOPICLONE
     Route: 048
     Dates: start: 20250422, end: 20250422
  8. ZOPICLONE [Suspect]
     Active Substance: ZOPICLONE
     Dates: start: 20250422, end: 20250422
  9. NICARDIPINE HYDROCHLORIDE [Suspect]
     Active Substance: NICARDIPINE HYDROCHLORIDE
     Indication: Product used for unknown indication
     Dates: start: 20250422, end: 20250422
  10. NICARDIPINE HYDROCHLORIDE [Suspect]
     Active Substance: NICARDIPINE HYDROCHLORIDE
     Route: 048
     Dates: start: 20250422, end: 20250422
  11. NICARDIPINE HYDROCHLORIDE [Suspect]
     Active Substance: NICARDIPINE HYDROCHLORIDE
     Route: 048
     Dates: start: 20250422, end: 20250422
  12. NICARDIPINE HYDROCHLORIDE [Suspect]
     Active Substance: NICARDIPINE HYDROCHLORIDE
     Dates: start: 20250422, end: 20250422
  13. CABOMETYX [Concomitant]
     Active Substance: CABOZANTINIB S-MALATE
  14. CABOMETYX [Concomitant]
     Active Substance: CABOZANTINIB S-MALATE
     Route: 065
  15. CABOMETYX [Concomitant]
     Active Substance: CABOZANTINIB S-MALATE
     Route: 065
  16. CABOMETYX [Concomitant]
     Active Substance: CABOZANTINIB S-MALATE
  17. DOLIPRANE [Concomitant]
     Active Substance: ACETAMINOPHEN
  18. DOLIPRANE [Concomitant]
     Active Substance: ACETAMINOPHEN
     Route: 065
  19. DOLIPRANE [Concomitant]
     Active Substance: ACETAMINOPHEN
     Route: 065
  20. DOLIPRANE [Concomitant]
     Active Substance: ACETAMINOPHEN

REACTIONS (3)
  - Somnolence [Recovered/Resolved]
  - Pneumonia aspiration [Recovered/Resolved]
  - Poisoning deliberate [Recovered/Resolved]

NARRATIVE: CASE EVENT DATE: 20250422
